FAERS Safety Report 12573659 (Version 1)
Quarter: 2016Q3

REPORT INFORMATION
  Report Type: Spontaneous
  Country: AU (occurrence: AU)
  Receive Date: 20160720
  Receipt Date: 20160720
  Transmission Date: 20161109
  Serious: Yes (Other)
  Sender: FDA-Public Use
  Company Number: PHHY2016AU098035

PATIENT
  Sex: Male

DRUGS (1)
  1. RITALIN [Suspect]
     Active Substance: METHYLPHENIDATE HYDROCHLORIDE
     Indication: PRODUCT USED FOR UNKNOWN INDICATION
     Dosage: 30 MG, QD (20 MG MANE AND 10 MG MIDDAY)
     Route: 065
     Dates: start: 2012

REACTIONS (3)
  - Non-obstructive cardiomyopathy [Unknown]
  - Hypertrophic cardiomyopathy [Unknown]
  - Chest pain [Unknown]

NARRATIVE: CASE EVENT DATE: 2013
